FAERS Safety Report 7359337-9 (Version None)
Quarter: 2011Q1

REPORT INFORMATION
  Report Type: 
  Country: None (occurrence: None)
  Receive Date: 20110317
  Receipt Date: 20110308
  Transmission Date: 20110831
  Serious: Yes (Hospitalization)
  Sender: FDA-Public Use
  Company Number: PHHO2011US04386

PATIENT
  Age: 66 Year
  Sex: Female
  Weight: 64 kg

DRUGS (4)
  1. CISPLATIN [Suspect]
     Indication: NON-SMALL CELL LUNG CANCER
     Dosage: UNK
     Dates: start: 20110228
  2. DILTIAZEM [Suspect]
     Indication: ATRIAL FIBRILLATION
  3. AFINITOR [Suspect]
     Indication: NON-SMALL CELL LUNG CANCER
     Dosage: 5 MG, UNK
     Route: 048
     Dates: start: 20110228, end: 20110304
  4. ALIMTA [Concomitant]
     Indication: NON-SMALL CELL LUNG CANCER

REACTIONS (5)
  - COMMUNICATION DISORDER [None]
  - HYPOPHAGIA [None]
  - BLOOD CREATININE INCREASED [None]
  - DEHYDRATION [None]
  - HYPERGLYCAEMIA [None]
